FAERS Safety Report 24857834 (Version 1)
Quarter: 2025Q1

REPORT INFORMATION
  Report Type: Report from Study
  Country: US (occurrence: US)
  Receive Date: 20250117
  Receipt Date: 20250117
  Transmission Date: 20250409
  Serious: No
  Sender: SUNOVION
  Company Number: US-SUMITOMO PHARMA SWITZERLAND GMBH-2025SPA000122

PATIENT

DRUGS (9)
  1. ORGOVYX [Suspect]
     Active Substance: RELUGOLIX
     Indication: Prostate cancer
     Dosage: 360 MG, SINGLE
     Route: 048
  2. ORGOVYX [Suspect]
     Active Substance: RELUGOLIX
     Dosage: 120 MG, QD
     Route: 048
  3. BYSTOLIC [Concomitant]
     Active Substance: NEBIVOLOL HYDROCHLORIDE
     Route: 065
  4. ERLEADA [Concomitant]
     Active Substance: APALUTAMIDE
     Route: 065
  5. METHIMAZOLE [Concomitant]
     Active Substance: METHIMAZOLE
     Route: 065
  6. RYBELSUS [Concomitant]
     Active Substance: SEMAGLUTIDE
     Route: 065
  7. VITAMIN C [Concomitant]
     Active Substance: ASCORBIC ACID
     Route: 065
  8. VITAMIN D NOS [Concomitant]
     Active Substance: CHOLECALCIFEROL\ERGOCALCIFEROL
     Route: 065
  9. LUPRON [Concomitant]
     Active Substance: LEUPROLIDE ACETATE
     Route: 065

REACTIONS (1)
  - Dizziness [Unknown]
